FAERS Safety Report 21715459 (Version 1)
Quarter: 2022Q4

REPORT INFORMATION
  Report Type: Report from Study
  Country: US (occurrence: US)
  Receive Date: 20221212
  Receipt Date: 20221212
  Transmission Date: 20230112
  Serious: Yes (Other)
  Sender: FDA-Public Use
  Company Number: US-BRISTOL-MYERS SQUIBB COMPANY-2022-139451

PATIENT
  Age: 59 Year
  Sex: Male

DRUGS (2)
  1. CAMZYOS [Suspect]
     Active Substance: MAVACAMTEN
     Indication: Product used for unknown indication
     Dosage: DOSE : UNAVAILABLE;     FREQ : DAILY
  2. CAMZYOS [Suspect]
     Active Substance: MAVACAMTEN
     Dosage: DOSE : UNAVAILABLE;     FREQ : DAILY

REACTIONS (2)
  - Echocardiogram abnormal [Unknown]
  - Amyloidosis senile [Not Recovered/Not Resolved]

NARRATIVE: CASE EVENT DATE: 20220830
